FAERS Safety Report 5098094-6 (Version None)
Quarter: 2006Q3

REPORT INFORMATION
  Report Type: 
  Country: None (occurrence: None)
  Receive Date: 20060906
  Receipt Date: 20060831
  Transmission Date: 20061208
  Serious: Yes (Death, Hospitalization)
  Sender: FDA-Public Use
  Company Number: CA-JNJFOC-20060703568

PATIENT
  Sex: Male

DRUGS (1)
  1. REMICADE [Suspect]
     Indication: COLITIS ULCERATIVE
     Route: 042

REACTIONS (10)
  - ASTHENIA [None]
  - CENTRAL NERVOUS SYSTEM INFECTION [None]
  - DEATH [None]
  - DYSPHAGIA [None]
  - NERVOUS SYSTEM DISORDER [None]
  - PHARYNGOLARYNGEAL PAIN [None]
  - PYREXIA [None]
  - RADIAL NERVE PALSY [None]
  - REFUSAL OF TREATMENT BY RELATIVE [None]
  - STREPTOCOCCAL INFECTION [None]
